FAERS Safety Report 21233045 (Version 4)
Quarter: 2023Q2

REPORT INFORMATION
  Report Type: Spontaneous
  Country: US (occurrence: US)
  Receive Date: 20220819
  Receipt Date: 20230426
  Transmission Date: 20230722
  Serious: No
  Sender: FDA-Public Use
  Company Number: US-PFIZER INC-202201067980

PATIENT
  Sex: Female

DRUGS (8)
  1. PAXLOVID [Suspect]
     Active Substance: NIRMATRELVIR\RITONAVIR
     Indication: COVID-19 treatment
     Dosage: UNK
  2. ESTRADIOL [Suspect]
     Active Substance: ESTRADIOL
     Dosage: UNK
  3. ADVAIR HFA [Suspect]
     Active Substance: FLUTICASONE PROPIONATE\SALMETEROL XINAFOATE
     Dosage: UNK
  4. FLUTICASONE [Suspect]
     Active Substance: FLUTICASONE
     Dosage: UNK
  5. CLONAZEPAM [Concomitant]
     Active Substance: CLONAZEPAM
     Dosage: UNK
  6. GABAPENTIN [Concomitant]
     Active Substance: GABAPENTIN
     Dosage: UNK
  7. VENLAFAXINE [Concomitant]
     Active Substance: VENLAFAXINE HYDROCHLORIDE
     Dosage: UNK
  8. PRILOSEC [Concomitant]
     Active Substance: OMEPRAZOLE MAGNESIUM
     Dosage: UNK

REACTIONS (1)
  - Nausea [Unknown]
